FAERS Safety Report 18272538 (Version 1)
Quarter: 2020Q3

REPORT INFORMATION
  Report Type: Other
  Country: IT (occurrence: IT)
  Receive Date: 20200916
  Receipt Date: 20200916
  Transmission Date: 20201103
  Serious: Yes (Death)
  Sender: FDA-Public Use
  Company Number: IT-ROCHE-2677400

PATIENT
  Age: 49 Year
  Sex: Male

DRUGS (6)
  1. TOCILIZUMAB. [Suspect]
     Active Substance: TOCILIZUMAB
     Indication: COVID-19
     Dosage: TWO DOSES 12 HOUR APART
     Route: 042
  2. HYDROXYCHLOROQUINE [Concomitant]
     Active Substance: HYDROXYCHLOROQUINE
  3. ACYCLOVIR. [Concomitant]
     Active Substance: ACYCLOVIR
     Dosage: 10 MG/KG
  4. DEXMEDETOMIDINE. [Concomitant]
     Active Substance: DEXMEDETOMIDINE
  5. TOCILIZUMAB. [Suspect]
     Active Substance: TOCILIZUMAB
     Indication: INTERSTITIAL LUNG DISEASE
  6. HYDROXYCHLOROQUINE [Concomitant]
     Active Substance: HYDROXYCHLOROQUINE
     Dosage: TAPERED TO 200 MG/TWICE A DAY FOR THE FOLLOWING 4 DAYS

REACTIONS (4)
  - Herpes simplex [Fatal]
  - Off label use [Unknown]
  - Intentional product use issue [Unknown]
  - Acute hepatic failure [Fatal]
